FAERS Safety Report 7425564-5 (Version None)
Quarter: 2011Q2

REPORT INFORMATION
  Report Type: 
  Country: None (occurrence: None)
  Receive Date: 20110420
  Receipt Date: 20110418
  Transmission Date: 20111010
  Serious: Yes (Hospitalization)
  Sender: FDA-Public Use
  Company Number: GB-PFIZER INC-2011084995

PATIENT
  Age: 60 Year
  Sex: Female
  Weight: 58 kg

DRUGS (6)
  1. ATORVASTATIN CALCIUM [Suspect]
     Dosage: UNK
     Dates: start: 20101020, end: 20110317
  2. CITALOPRAM [Concomitant]
  3. LANSOPRAZOLE [Concomitant]
  4. MERBENTYL [Concomitant]
  5. CALCICHEW-D3 [Concomitant]
  6. ALENDRONIC ACID [Concomitant]

REACTIONS (2)
  - ABDOMINAL PAIN [None]
  - PANCREATITIS [None]
